FAERS Safety Report 5306719-2 (Version None)
Quarter: 2007Q2

REPORT INFORMATION
  Report Type: 
  Country: None (occurrence: None)
  Receive Date: 20070424
  Receipt Date: 20070413
  Transmission Date: 20071010
  Serious: Yes (Hospitalization, Other)
  Sender: FDA-Public Use
  Company Number: US-PFIZER INC-2007031373

PATIENT
  Sex: Female
  Weight: 116.6 kg

DRUGS (6)
  1. SUTENT [Suspect]
     Indication: METASTATIC RENAL CELL CARCINOMA
  2. LISINOPRIL [Concomitant]
  3. VITAMIN CAP [Concomitant]
  4. CENESTIN [Concomitant]
  5. BYETTA [Concomitant]
  6. ZETIA [Concomitant]

REACTIONS (4)
  - ABDOMINAL ABSCESS [None]
  - HAEMOGLOBIN DECREASED [None]
  - PLATELET COUNT DECREASED [None]
  - PYREXIA [None]
